FAERS Safety Report 9401189 (Version 3)
Quarter: 2013Q3

REPORT INFORMATION
  Report Type: Report from Study
  Country: US (occurrence: US)
  Receive Date: 20130715
  Receipt Date: 20130828
  Transmission Date: 20140515
  Serious: Yes (Hospitalization, Other)
  Sender: FDA-Public Use
  Company Number: US-ABBOTT-13P-163-1105006-00

PATIENT
  Age: 35 Year
  Sex: Female
  Weight: 103.06 kg

DRUGS (10)
  1. LUPRON DEPOT [Suspect]
     Indication: ENDOMETRIOSIS
     Dates: start: 20130517
  2. ABILIFY [Suspect]
     Indication: PRODUCT USED FOR UNKNOWN INDICATION
     Route: 048
     Dates: start: 20130607
  3. ABILIFY [Suspect]
     Route: 048
     Dates: start: 20130627
  4. ABILIFY [Suspect]
     Route: 048
     Dates: start: 20130704
  5. DEPAKOTE ER [Concomitant]
     Indication: PRODUCT USED FOR UNKNOWN INDICATION
     Dosage: MORNING AND EVENING
     Dates: start: 20130607
  6. ZOFRAN [Concomitant]
     Indication: NAUSEA
     Dosage: AS NEEDED
     Route: 060
     Dates: start: 20120917
  7. ZOFRAN [Concomitant]
     Indication: VOMITING
  8. TRAZODONE [Concomitant]
     Indication: PRODUCT USED FOR UNKNOWN INDICATION
     Dosage: AT BEDTIME
     Route: 048
  9. NORETHINDRONE ACETATE [Concomitant]
     Indication: PRODUCT USED FOR UNKNOWN INDICATION
     Route: 048
  10. PATINOL [Concomitant]

REACTIONS (24)
  - Hypertension [Recovered/Resolved]
  - Drug ineffective [Unknown]
  - Back pain [Unknown]
  - Tremor [Not Recovered/Not Resolved]
  - Abdominal pain [Recovering/Resolving]
  - Abdominal pain [Recovering/Resolving]
  - Proctalgia [Not Recovered/Not Resolved]
  - Vulvovaginal pain [Not Recovered/Not Resolved]
  - Abnormal dreams [Unknown]
  - Disturbance in attention [Unknown]
  - Mood swings [Unknown]
  - Fatigue [Unknown]
  - Insomnia [Not Recovered/Not Resolved]
  - Dizziness [Not Recovered/Not Resolved]
  - Amnesia [Not Recovered/Not Resolved]
  - Nausea [Unknown]
  - Metrorrhagia [Unknown]
  - Thrombosis [Unknown]
  - Menstrual disorder [Unknown]
  - Menorrhagia [Recovering/Resolving]
  - Abdominal distension [Unknown]
  - Nausea [Recovered/Resolved]
  - Vomiting [Recovered/Resolved]
  - Insomnia [Unknown]
